FAERS Safety Report 4943504-5 (Version None)
Quarter: 2006Q1

REPORT INFORMATION
  Report Type: 
  Country: None (occurrence: None)
  Receive Date: 20060314
  Receipt Date: 20060309
  Transmission Date: 20060701
  Serious: Yes (Hospitalization, Other)
  Sender: FDA-Public Use
  Company Number: US-JNJFOC-20060302910

PATIENT
  Sex: Female

DRUGS (1)
  1. TRAMADOL HCL [Suspect]

REACTIONS (4)
  - BRAIN DAMAGE [None]
  - COMA [None]
  - INTENTIONAL OVERDOSE [None]
  - SUICIDE ATTEMPT [None]
